FAERS Safety Report 11619579 (Version 2)
Quarter: 2015Q4

REPORT INFORMATION
  Report Type: Spontaneous
  Country: US (occurrence: US)
  Receive Date: 20151012
  Receipt Date: 20151229
  Transmission Date: 20160304
  Serious: Yes (Disabling, Other)
  Sender: FDA-Public Use
  Company Number: PHEH2015US019796

PATIENT
  Age: 40 Year
  Sex: Female
  Weight: 85.71 kg

DRUGS (1)
  1. GLEEVEC [Suspect]
     Active Substance: IMATINIB MESYLATE
     Indication: CHRONIC MYELOID LEUKAEMIA
     Dosage: 400 MG, UNK
     Route: 048
     Dates: start: 20150324, end: 20150911

REACTIONS (6)
  - Abdominal pain upper [Unknown]
  - Jaundice [Unknown]
  - Acute hepatic failure [Recovering/Resolving]
  - Nausea [Unknown]
  - Hepatic cirrhosis [Unknown]
  - Ascites [Unknown]

NARRATIVE: CASE EVENT DATE: 20150903
